FAERS Safety Report 22140325 (Version 4)
Quarter: 2023Q2

REPORT INFORMATION
  Report Type: Spontaneous
  Country: CL (occurrence: CL)
  Receive Date: 20230327
  Receipt Date: 20230522
  Transmission Date: 20230722
  Serious: No
  Sender: FDA-Public Use
  Company Number: CL-PFIZER INC-PV202300050108

PATIENT
  Age: 13 Year
  Sex: Female

DRUGS (1)
  1. GENOTROPIN [Suspect]
     Active Substance: SOMATROPIN
     Dosage: UNK

REACTIONS (3)
  - Poor quality device used [Unknown]
  - Incorrect dose administered by device [Unknown]
  - Device calibration failure [Unknown]

NARRATIVE: CASE EVENT DATE: 20230301
